FAERS Safety Report 13791981 (Version 1)
Quarter: 2017Q3

REPORT INFORMATION
  Report Type: Spontaneous
  Country: US (occurrence: US)
  Receive Date: 20170725
  Receipt Date: 20170725
  Transmission Date: 20171127
  Serious: Yes (Other)
  Sender: FDA-Public Use
  Company Number: US-ROCHE-1958824

PATIENT
  Age: 79 Year
  Sex: Female

DRUGS (2)
  1. ESBRIET [Suspect]
     Active Substance: PIRFENIDONE
     Indication: IDIOPATHIC PULMONARY FIBROSIS
     Dosage: 801 MG TID
     Route: 048
     Dates: start: 20161018, end: 20170529
  2. ESBRIET [Suspect]
     Active Substance: PIRFENIDONE
     Dosage: 534 MG TID
     Route: 048
     Dates: start: 20170530

REACTIONS (1)
  - Abdominal discomfort [Recovered/Resolved]

NARRATIVE: CASE EVENT DATE: 20170529
